FAERS Safety Report 11682297 (Version 1)
Quarter: 2015Q4

REPORT INFORMATION
  Report Type: Spontaneous
  Country: US (occurrence: US)
  Receive Date: 20151029
  Receipt Date: 20151029
  Transmission Date: 20160304
  Serious: Yes (Other)
  Sender: FDA-Public Use
  Company Number: US-SHIRE-US201513039

PATIENT
  Age: 67 Year
  Sex: Female
  Weight: 58.96 kg

DRUGS (2)
  1. PENTASA [Suspect]
     Active Substance: MESALAMINE
     Indication: CROHN^S DISEASE
     Dosage: 500 MG, UNKNOWN
     Route: 048
     Dates: end: 201509
  2. PENTASA [Suspect]
     Active Substance: MESALAMINE
     Indication: IRRITABLE BOWEL SYNDROME

REACTIONS (7)
  - Abdominal pain [Unknown]
  - Crohn^s disease [Unknown]
  - Irritable bowel syndrome [Unknown]
  - Drug dose omission [Not Recovered/Not Resolved]
  - Faecal incontinence [Unknown]
  - Product use issue [Unknown]
  - Malaise [Unknown]

NARRATIVE: CASE EVENT DATE: 201509
